FAERS Safety Report 24565544 (Version 1)
Quarter: 2024Q4

REPORT INFORMATION
  Report Type: Spontaneous
  Country: IT (occurrence: IT)
  Receive Date: 20241030
  Receipt Date: 20241030
  Transmission Date: 20250114
  Serious: Yes (Life-Threatening, Hospitalization, Other)
  Sender: AMGEN
  Company Number: IT-AMGEN-ITASP2024209387

PATIENT
  Age: 72 Year
  Sex: Female

DRUGS (4)
  1. CARFILZOMIB [Suspect]
     Active Substance: CARFILZOMIB
     Indication: Plasma cell myeloma
     Dosage: 20 MILLIGRAM/SQ. METER (ON DAYS 1-2 OF CYCLE 1)
     Route: 065
  2. CARFILZOMIB [Suspect]
     Active Substance: CARFILZOMIB
     Dosage: 56 MILLIGRAM/SQ. METER (ON DAYS 1-2, 8-9, 15-16)
     Route: 065
  3. DEXAMETHASONE [Suspect]
     Active Substance: DEXAMETHASONE
     Indication: Plasma cell myeloma
     Dosage: 20 MILLIGRAM, Q2WK (BIWEEKLY)
     Route: 065
  4. ECULIZUMAB [Concomitant]
     Active Substance: ECULIZUMAB
     Dosage: UNK (INITIALLY WEEKLY, AND LATER BIMONTHLY)
     Route: 065

REACTIONS (4)
  - COVID-19 [Unknown]
  - Thrombotic microangiopathy [Unknown]
  - Hypertension [Unknown]
  - Therapy partial responder [Unknown]
